FAERS Safety Report 18213540 (Version 3)
Quarter: 2020Q3

REPORT INFORMATION
  Report Type: Spontaneous
  Country: US (occurrence: US)
  Receive Date: 20200831
  Receipt Date: 20200925
  Transmission Date: 20201103
  Serious: Yes (Hospitalization)
  Sender: FDA-Public Use
  Company Number: US-PFIZER INC-2020334362

PATIENT
  Age: 60 Year
  Sex: Female

DRUGS (2)
  1. IBRANCE [Suspect]
     Active Substance: PALBOCICLIB
     Dosage: 125 MG
     Dates: start: 20200811, end: 202008
  2. IBRANCE [Suspect]
     Active Substance: PALBOCICLIB
     Dosage: 125 MG
     Dates: start: 20200817, end: 2020

REACTIONS (5)
  - Blood count abnormal [Unknown]
  - Nausea [Unknown]
  - Pyrexia [Unknown]
  - Infection [Unknown]
  - Constipation [Unknown]

NARRATIVE: CASE EVENT DATE: 2020
